FAERS Safety Report 19465514 (Version 1)
Quarter: 2021Q2

REPORT INFORMATION
  Report Type: Report from Study
  Country: BR (occurrence: BR)
  Receive Date: 20210624
  Receipt Date: 20210624
  Transmission Date: 20210717
  Serious: Yes (Hospitalization)
  Sender: FDA-Public Use
  Company Number: NVSC2021BR135425

PATIENT
  Age: 52 Year
  Sex: Female

DRUGS (1)
  1. COSENTYX [Suspect]
     Active Substance: SECUKINUMAB
     Indication: PSORIATIC ARTHROPATHY
     Dosage: 300 MG, Q4W (EVERY 28 DAYS)
     Route: 065
     Dates: start: 20191010

REACTIONS (8)
  - Pyelonephritis [Unknown]
  - Arthropathy [Not Recovered/Not Resolved]
  - Nephrolithiasis [Unknown]
  - Tendon disorder [Unknown]
  - Urinary tract infection [Recovering/Resolving]
  - Weight bearing difficulty [Unknown]
  - Cough [Recovering/Resolving]
  - Bursitis [Unknown]

NARRATIVE: CASE EVENT DATE: 20210526
